FAERS Safety Report 23975616 (Version 1)
Quarter: 2024Q2

REPORT INFORMATION
  Report Type: Spontaneous
  Country: US (occurrence: US)
  Receive Date: 20240614
  Receipt Date: 20240614
  Transmission Date: 20240716
  Serious: No
  Sender: FDA-Public Use
  Company Number: US-ALVOGEN-2024093228

PATIENT

DRUGS (1)
  1. LISDEXAMFETAMINE DIMESYLATE [Suspect]
     Active Substance: LISDEXAMFETAMINE DIMESYLATE
     Indication: Product used for unknown indication
     Dosage: TAKING ONE 30MG CAPSULE BY MOUTH?EXPIRATION DATE: UU-JUN-2025.?DATE OF MANUFACTURER: 17-JUL-2023
     Route: 048

REACTIONS (14)
  - Condition aggravated [Unknown]
  - Fatigue [Unknown]
  - Indifference [Unknown]
  - Feeling abnormal [Unknown]
  - Disturbance in attention [Unknown]
  - Heart rate increased [Unknown]
  - Feeling jittery [Unknown]
  - Anxiety [Unknown]
  - Palpitations [Unknown]
  - Dizziness [Unknown]
  - Irritability [Unknown]
  - Drug effect less than expected [Unknown]
  - Product substitution issue [Unknown]
  - Therapeutic response decreased [Unknown]
